FAERS Safety Report 9907093 (Version 1)
Quarter: 2014Q1

REPORT INFORMATION
  Report Type: Spontaneous
  Country: FR (occurrence: FR)
  Receive Date: 20140218
  Receipt Date: 20140218
  Transmission Date: 20141002
  Serious: Yes (Hospitalization, Other)
  Sender: FDA-Public Use
  Company Number: FR-ELI_LILLY_AND_COMPANY-FR201402002293

PATIENT
  Age: 64 Year
  Sex: Female

DRUGS (9)
  1. ALIMTA [Suspect]
     Indication: BRONCHIAL CARCINOMA
     Dosage: 800 MG, UNK
     Route: 042
     Dates: start: 20130830
  2. ALIMTA [Suspect]
     Dosage: 775 MG, UNK
     Route: 042
     Dates: start: 20131002, end: 20131002
  3. CISPLATINE [Suspect]
     Indication: BRONCHIAL CARCINOMA
     Dosage: UNK
     Route: 042
     Dates: start: 20130830, end: 20131002
  4. TENORDATE [Concomitant]
  5. COVERSYL [Concomitant]
  6. POTASSIUM [Concomitant]
  7. PRIMPERAN [Concomitant]
  8. SPECIAFOLDINE [Concomitant]
  9. ALPRAZOLAM [Concomitant]

REACTIONS (7)
  - Bone marrow failure [Recovered/Resolved]
  - Pancytopenia [Recovered/Resolved]
  - General physical health deterioration [Unknown]
  - Hypokalaemia [Recovered/Resolved]
  - Weight decreased [Unknown]
  - Oxygen saturation decreased [Unknown]
  - Pyrexia [Unknown]
